FAERS Safety Report 22605084 (Version 8)
Quarter: 2023Q4

REPORT INFORMATION
  Report Type: Report from Study
  Country: TW (occurrence: TW)
  Receive Date: 20230615
  Receipt Date: 20231006
  Transmission Date: 20240110
  Serious: Yes (Life-Threatening, Hospitalization)
  Sender: FDA-Public Use
  Company Number: TW-JNJFOC-20230625928

PATIENT
  Age: 61 Year
  Sex: Male
  Weight: 65 kg

DRUGS (90)
  1. TECLISTAMAB [Suspect]
     Active Substance: TECLISTAMAB
     Indication: Plasma cell myeloma refractory
     Route: 058
     Dates: start: 20220809, end: 20220815
  2. TECLISTAMAB [Suspect]
     Active Substance: TECLISTAMAB
     Route: 058
     Dates: start: 20220817, end: 20230417
  3. DARATUMUMAB [Suspect]
     Active Substance: DARATUMUMAB
     Indication: Plasma cell myeloma refractory
     Dosage: 15 ML
     Route: 058
     Dates: start: 20220808, end: 20230417
  4. THYROXINE [Concomitant]
     Active Substance: LEVOTHYROXINE
     Indication: Hypothyroidism
     Dosage: 0.15 (UNIT DOSE NOT PROVIDED)
     Route: 048
     Dates: start: 20180809
  5. ACYCLOVIR [Concomitant]
     Active Substance: ACYCLOVIR
     Indication: Prophylaxis
     Dosage: 400 NO UNIT DOSE PROVIDED
     Route: 048
     Dates: start: 20220816, end: 20230711
  6. COTRIMOXAZOLE [Concomitant]
     Active Substance: SULFAMETHOXAZOLE\TRIMETHOPRIM
     Indication: Infection prophylaxis
     Dosage: 1-  NO UNIT DOSE PROVIDED (SMZ 400MG+TMP 80MG)
     Route: 048
     Dates: start: 20220816, end: 20230711
  7. FEXOFENADINE [Concomitant]
     Active Substance: FEXOFENADINE HYDROCHLORIDE
     Indication: Upper respiratory tract infection
     Dosage: 180 NO UNIT DOSE PROVIDED
     Route: 048
     Dates: start: 20230320, end: 20230515
  8. DEXTROMETHORPHAN [Concomitant]
     Active Substance: DEXTROMETHORPHAN
     Indication: Upper respiratory tract infection
     Dosage: 15 NO UNIT DOSE PROVIDED
     Route: 048
     Dates: start: 20230509, end: 20230511
  9. DOXYCYCLINE [Concomitant]
     Active Substance: DOXYCYCLINE
     Indication: Upper respiratory tract infection
     Dosage: 100 NO UNIT DOSE PROVIDED
     Route: 048
     Dates: start: 20230509, end: 20230511
  10. LORATADINE [Concomitant]
     Active Substance: LORATADINE
     Indication: Upper respiratory tract infection
     Dosage: 1 NO UNIT DOSE PROVIDED
     Route: 048
     Dates: start: 20230509, end: 20230511
  11. MONTELUKAST SODIUM [Concomitant]
     Active Substance: MONTELUKAST SODIUM
     Indication: Upper respiratory tract infection
     Dosage: 0.5 NO UNIT DOSE PROVIDED
     Route: 048
     Dates: start: 20230509, end: 20230511
  12. RIFAMPIN [Concomitant]
     Active Substance: RIFAMPIN
     Indication: Upper respiratory tract infection
     Dosage: 300 NO UNIT DOSE PROVIDED
     Route: 048
     Dates: start: 20230509, end: 20230511
  13. STROCAIN [OXETACAINE] [Concomitant]
     Indication: Upper respiratory tract infection
     Dosage: 1 - NO UNIT DOSE PROVIDED (OXETHAZAINE 5MG,POLYMIGEL 244MG)
     Route: 048
     Dates: start: 20230509, end: 20230511
  14. THEOPHYLLINE ANHYDROUS [Concomitant]
     Active Substance: THEOPHYLLINE ANHYDROUS
     Indication: Upper respiratory tract infection
     Dosage: 0.25 NO UNIT DOSE PROVIDED
     Route: 048
     Dates: start: 20230509, end: 20230511
  15. ZCOUGH [Concomitant]
     Indication: Upper respiratory tract infection
     Dosage: 100 NO UNIT DOSE PROVIDED
     Route: 048
     Dates: start: 20230509, end: 20230511
  16. BETAMETHASONE [Concomitant]
     Active Substance: BETAMETHASONE
     Indication: Upper respiratory tract infection
     Dosage: 1 NO UNIT DOSE PROVIDED
     Route: 048
     Dates: start: 20230513, end: 20230515
  17. BUDESONIDE [Concomitant]
     Active Substance: BUDESONIDE
     Indication: Upper respiratory tract infection
     Dosage: 1 NO UNIT DOSE PROVIDED
     Route: 045
     Dates: start: 20230513, end: 20230515
  18. CETIRIZINE HYDROCHLORIDE [Concomitant]
     Active Substance: CETIRIZINE HYDROCHLORIDE
     Indication: Upper respiratory tract infection
     Dosage: 10 NO DOSE UNIT PROVIDED
     Route: 048
     Dates: start: 20230513, end: 20230515
  19. CETIRIZINE HYDROCHLORIDE [Concomitant]
     Active Substance: CETIRIZINE HYDROCHLORIDE
     Indication: COVID-19
     Dosage: 1 NO DOSE UNIT PROVIDED
     Route: 048
     Dates: start: 20230529, end: 20230529
  20. CETIRIZINE HYDROCHLORIDE [Concomitant]
     Active Substance: CETIRIZINE HYDROCHLORIDE
     Dosage: 1 NO DOSE UNIT PROVIDED
     Route: 048
     Dates: start: 20230603, end: 20230605
  21. COLIN [CHLORPHENAMINE MALEATE;GLYCYRRHIZIC ACID;PLATYCODON GRANDIFLORU [Concomitant]
     Indication: Upper respiratory tract infection
     Dosage: 1 NO UNIT DOSE PROVIDED
     Route: 048
     Dates: start: 20230513, end: 20230515
  22. FINSKA LP [Concomitant]
     Indication: Upper respiratory tract infection
     Dosage: 1 NO UNIT DOSE PROVIDED (PSEUDOEPHEDRINE120MG + LORATADINE 5MG)
     Route: 048
     Dates: start: 20230513, end: 20230515
  23. NOSCAPINE [Concomitant]
     Active Substance: NOSCAPINE
     Indication: Upper respiratory tract infection
     Dosage: 20 NO UNIT DOSE PROVIDED
     Route: 048
     Dates: start: 20230513, end: 20230515
  24. OFLOXACIN [Concomitant]
     Active Substance: OFLOXACIN
     Indication: Upper respiratory tract infection
     Dosage: 200 NO UNIT DOSE PROVIDED
     Route: 048
     Dates: start: 20230513, end: 20230515
  25. OXETHAZAINE [Concomitant]
     Active Substance: OXETHAZAINE
     Indication: Prophylaxis
     Dosage: 10 NO UNIT DOSE PROVIDED
     Route: 048
     Dates: start: 20230513, end: 20230515
  26. PAWELL [Concomitant]
     Indication: Prophylaxis
     Dosage: 1 NO UNIT DOSE PROVIDED
     Route: 048
     Dates: start: 20230513, end: 20230515
  27. TIPEPIDINE HIBENZATE [Concomitant]
     Active Substance: TIPEPIDINE HIBENZATE
     Indication: Upper respiratory tract infection
     Dosage: 20- NO UNIT DOSE PROVIDED
     Route: 048
     Dates: start: 20230513, end: 20230515
  28. AMBROXOL HYDROCHLORIDE [Concomitant]
     Active Substance: AMBROXOL HYDROCHLORIDE
     Indication: Acute sinusitis
     Dosage: 30- NO UNIT DOSE PROVIDED
     Route: 048
     Dates: start: 20230516, end: 20230612
  29. FAMOTIDINE [Concomitant]
     Active Substance: FAMOTIDINE
     Indication: Prophylaxis
     Dosage: 20- NO UNIT DOSE PROVIDED
     Route: 048
     Dates: start: 20230516
  30. LEVOCETIRIZINE [Concomitant]
     Active Substance: LEVOCETIRIZINE
     Indication: Acute sinusitis
     Dosage: 5- NO UNIT DOSE PROVIDED
     Route: 048
     Dates: start: 20230516, end: 20230621
  31. AMOXICILLIN\CLAVULANIC ACID [Concomitant]
     Active Substance: AMOXICILLIN\CLAVULANIC ACID
     Indication: Infection prophylaxis
     Dosage: 1-NO UNIT DOSE PROVIDED (CLAVULANIC ACID 125MG + AMOXYCILLIN 875MG)
     Route: 048
     Dates: start: 20230516, end: 20230522
  32. AMOXICILLIN\CLAVULANIC ACID [Concomitant]
     Active Substance: AMOXICILLIN\CLAVULANIC ACID
     Indication: Acute sinusitis
  33. ENTECAVIR [Concomitant]
     Active Substance: ENTECAVIR
     Indication: Hepatitis B reactivation
     Dosage: 0.5- NO UNIT DOSE PROVIDED
     Route: 048
     Dates: start: 20230516, end: 20230606
  34. ENTECAVIR [Concomitant]
     Active Substance: ENTECAVIR
     Dosage: 0.5- NO UNIT DOSE PROVIDED
     Route: 048
     Dates: start: 20230607
  35. CLARITHROMYCIN [Concomitant]
     Active Substance: CLARITHROMYCIN
     Indication: Acute sinusitis
     Dosage: 500 NO UNIT DOSE PROVIDED
     Route: 048
     Dates: start: 20230523, end: 20230605
  36. BROWN MIXTURE [ANTIMONY POTASSIUM TARTRATE;GLYCYRRHIZA SPP.;PAPAVER SO [Concomitant]
     Indication: COVID-19
     Dosage: 10 NO UNIT DOSE PROVIDED
     Route: 048
     Dates: start: 20230529, end: 20230529
  37. BROWN MIXTURE [ANTIMONY POTASSIUM TARTRATE;GLYCYRRHIZA SPP.;PAPAVER SO [Concomitant]
     Indication: COVID-19 pneumonia
     Dosage: 10 NO UNIT DOSE PROVIDED
     Route: 048
     Dates: start: 20230603, end: 20230605
  38. BROWN MIXTURE [ANTIMONY POTASSIUM TARTRATE;GLYCYRRHIZA SPP.;PAPAVER SO [Concomitant]
     Dosage: 10
     Route: 048
     Dates: start: 20230606, end: 20230611
  39. BROWN MIXTURE [ANTIMONY POTASSIUM TARTRATE;GLYCYRRHIZA SPP.;PAPAVER SO [Concomitant]
     Dosage: 5
     Route: 048
     Dates: start: 20230615, end: 20230619
  40. CETIRIZINE [Concomitant]
     Active Substance: CETIRIZINE HYDROCHLORIDE
     Indication: COVID-19
     Dosage: 1 UNIT DOSE NOT PROVIDED
     Route: 048
     Dates: start: 20230529, end: 20230529
  41. CETIRIZINE [Concomitant]
     Active Substance: CETIRIZINE HYDROCHLORIDE
     Dosage: 1 UNIT DOSE NOT PROVIDED
     Route: 048
     Dates: start: 20230603, end: 20230605
  42. CIMETIDINE [Concomitant]
     Active Substance: CIMETIDINE
     Indication: Prophylaxis
     Dosage: 1 NO UNIT DOSE PROVIDED
     Route: 048
     Dates: start: 20230529, end: 20230529
  43. CIMETIDINE [Concomitant]
     Active Substance: CIMETIDINE
     Dosage: 1 NO UNIT DOSE PROVIDED
     Route: 048
     Dates: start: 20230603, end: 20230605
  44. COUDE [Concomitant]
     Indication: COVID-19
     Dosage: 1 UNIT DOSE NOT PROVIDED
     Route: 048
     Dates: start: 20230529, end: 20230529
  45. COUDE [Concomitant]
     Dosage: 1 UNIT DOSE NOT PROVIDED
     Route: 048
     Dates: start: 20230603, end: 20230605
  46. IBUPROFEN [Concomitant]
     Active Substance: IBUPROFEN
     Indication: COVID-19
     Dosage: 400 NO UNIT DOSE PROVIDED
     Route: 048
     Dates: start: 20230529, end: 20230529
  47. MEQUITAZINE [Concomitant]
     Active Substance: MEQUITAZINE
     Indication: COVID-19
     Dosage: 5 UNIT DOSE NOT PROVIDED
     Route: 048
     Dates: start: 20230529, end: 20230529
  48. PREDNISOLONE [Concomitant]
     Active Substance: PREDNISOLONE
     Indication: COVID-19
     Dosage: 5 NO UNIT DOSE PROVIDED
     Route: 048
     Dates: start: 20230529, end: 20230529
  49. PAXLOVID [Concomitant]
     Active Substance: NIRMATRELVIR\RITONAVIR
     Indication: COVID-19
     Dosage: 3 NO UNIT DOSE PROVIDED
     Route: 048
     Dates: start: 20230529, end: 20230602
  50. DIPHENHYDRAMINE HYDROCHLORIDE [Concomitant]
     Active Substance: DIPHENHYDRAMINE HYDROCHLORIDE
     Indication: Prophylaxis
     Route: 042
     Dates: start: 20230530, end: 20230530
  51. DIPHENHYDRAMINE HYDROCHLORIDE [Concomitant]
     Active Substance: DIPHENHYDRAMINE HYDROCHLORIDE
     Dosage: 30 (NO UNIT DOSE PROVIDED)
     Route: 042
     Dates: start: 20230703, end: 20230703
  52. HUMAN IMMUNOGLOBULIN G [Concomitant]
     Active Substance: HUMAN IMMUNOGLOBULIN G
     Indication: Hypogammaglobulinaemia
     Dosage: 27 UNIT DOSE NOT PROVIDED
     Route: 042
     Dates: start: 20230530, end: 20230530
  53. HUMAN IMMUNOGLOBULIN G [Concomitant]
     Active Substance: HUMAN IMMUNOGLOBULIN G
     Dosage: 27 UNIT DOSE NOT PROVIDED
     Route: 042
     Dates: start: 20230703, end: 20230703
  54. HUMAN IMMUNOGLOBULIN G [Concomitant]
     Active Substance: HUMAN IMMUNOGLOBULIN G
     Dosage: 27 UNIT DOSE NOT PROVIDED
     Route: 042
     Dates: start: 20230615, end: 20230615
  55. ACTEIN [Concomitant]
     Indication: COVID-19
     Dosage: 66.7 NO UNIT DOSE PROVIDED
     Route: 048
     Dates: start: 20230603, end: 20230605
  56. PROCATEROL HCL [Concomitant]
     Indication: COVID-19
     Dosage: 25 NO UNIT DOSE PROVIDED
     Route: 048
     Dates: start: 20230603, end: 20230605
  57. DEXTROMETHORPHAN HYDROBROMIDE;LYSOZYME CHLORIDE [Concomitant]
     Indication: COVID-19
     Route: 048
     Dates: start: 20230603, end: 20230605
  58. DEXTROMETHORPHAN HYDROBROMIDE;LYSOZYME CHLORIDE [Concomitant]
     Route: 048
     Dates: start: 20230603, end: 20230605
  59. MOSAPRIDE CITRATE [Concomitant]
     Active Substance: MOSAPRIDE CITRATE
     Indication: Gastrointestinal disorder therapy
     Dosage: 5
     Route: 048
     Dates: start: 20230708, end: 20230901
  60. ESTAZOLAM [Concomitant]
     Active Substance: ESTAZOLAM
     Indication: Sleep disorder therapy
     Dosage: 2 (UNIT DOSE NOT PROVIDED)
     Route: 048
     Dates: start: 20230721, end: 20230809
  61. SENNOSIDES A AND B [Concomitant]
     Active Substance: SENNOSIDES A AND B
     Indication: Constipation prophylaxis
     Dosage: CUMULATIVE DOSAGE NUMBER: 24
     Route: 048
     Dates: start: 20230625, end: 20230630
  62. SENNOSIDES A AND B [Concomitant]
     Active Substance: SENNOSIDES A AND B
     Dosage: 24 (NO UNIT DOSE PROVIDED)
     Route: 048
     Dates: start: 20230724
  63. SENNOSIDES A AND B [Concomitant]
     Active Substance: SENNOSIDES A AND B
     Dosage: 24 (NO UNIT DOSE PROVIDED)
     Route: 048
     Dates: start: 20230708, end: 20230710
  64. SENNOSIDES A AND B [Concomitant]
     Active Substance: SENNOSIDES A AND B
     Dosage: 24 (NO UNIT DOSE PROVIDED)
     Route: 048
     Dates: start: 20230721, end: 20230723
  65. METOCLOPRAMIDE [Concomitant]
     Active Substance: METOCLOPRAMIDE
     Indication: Gastrointestinal disorder therapy
     Dosage: 5- NO UNIT DOSE PROVIDED
     Route: 048
     Dates: start: 20230731
  66. METOCLOPRAMIDE [Concomitant]
     Active Substance: METOCLOPRAMIDE
     Dosage: 10- NO UNIT DOSE PROVIDED
     Route: 048
     Dates: start: 20230703, end: 20230707
  67. TRIAMCINOLONE IN ORABASE ^GOLDEN HORSE^ [Concomitant]
     Indication: Prophylaxis
     Dosage: 6- NO UNIT DOSE PROVIDED
     Route: 061
     Dates: start: 20230806
  68. KCL [Concomitant]
     Active Substance: POTASSIUM CHLORIDE
     Indication: Leukopenia
     Route: 042
     Dates: start: 20230807, end: 20230810
  69. LIDOCAINE HYDROCHLORIDE [Concomitant]
     Active Substance: LIDOCAINE HYDROCHLORIDE
     Indication: Prophylaxis
     Dosage: 20 (NO UNIT DOSE PROVIDED)
     Route: 061
     Dates: start: 20230621, end: 20230621
  70. LIDOCAINE HYDROCHLORIDE [Concomitant]
     Active Substance: LIDOCAINE HYDROCHLORIDE
     Dosage: 20 (NO UNIT DOSE PROVIDED)
     Route: 061
     Dates: start: 20230704, end: 20230704
  71. LIDOCAINE HYDROCHLORIDE [Concomitant]
     Active Substance: LIDOCAINE HYDROCHLORIDE
     Dosage: 20 (NO UNIT DOSE PROVIDED)
     Route: 061
     Dates: start: 20230714, end: 20230714
  72. BISACODYL [Concomitant]
     Active Substance: BISACODYL
     Indication: Constipation prophylaxis
     Dosage: 10 (NO UNIT DOSE PROVIDED)
     Route: 054
     Dates: start: 20230624, end: 20230624
  73. BISACODYL [Concomitant]
     Active Substance: BISACODYL
     Dosage: 10 (NO UNIT DOSE PROVIDED)
     Route: 054
     Dates: start: 20230705, end: 20230705
  74. BISACODYL [Concomitant]
     Active Substance: BISACODYL
     Dosage: 10 (NO UNIT DOSE PROVIDED)
     Route: 054
     Dates: start: 20230717, end: 20230717
  75. FUROSEMIDE [Concomitant]
     Active Substance: FUROSEMIDE
     Indication: Diuretic therapy
     Dosage: 20 (NO UNIT DOSE PROVIDED)
     Route: 042
     Dates: start: 20230628, end: 20230701
  76. FUROSEMIDE [Concomitant]
     Active Substance: FUROSEMIDE
     Dosage: 20 (NO UNIT DOSE PROVIDED)
     Route: 042
     Dates: start: 20230706, end: 20230706
  77. FUROSEMIDE [Concomitant]
     Active Substance: FUROSEMIDE
     Dosage: 10 (NO UNIT DOSE PROVIDED)
     Route: 042
     Dates: start: 20230707, end: 20230707
  78. SODIUM PHOSPHATE [Concomitant]
     Active Substance: SODIUM PHOSPHATE
     Indication: Hypophosphataemia
     Dosage: 600 (NO UNIT DOSE PROVIDED)
     Route: 048
     Dates: start: 20230630, end: 20230702
  79. SODIUM PHOSPHATE [Concomitant]
     Active Substance: SODIUM PHOSPHATE
     Route: 048
     Dates: start: 20230703, end: 20230708
  80. CALCIUM POLYSTYRENE SULFONATE [Concomitant]
     Active Substance: CALCIUM POLYSTYRENE SULFONATE
     Indication: Prophylaxis
     Dosage: 5 (NO UNIT DOSE PROVIDED)
     Route: 048
     Dates: start: 20230630, end: 20230705
  81. CONSLIFE [Concomitant]
     Indication: Constipation prophylaxis
     Dosage: 2 (NO UNIT DOSE PROVIDED)
     Route: 048
     Dates: start: 20230630, end: 20230713
  82. ALBUMIN HUMAN [Concomitant]
     Active Substance: ALBUMIN HUMAN
     Indication: Hypoalbuminaemia
     Dosage: 50 (NO UNIT DOSE PROVIDED)
     Route: 042
     Dates: start: 20230706, end: 20230709
  83. POTASSIUM [Concomitant]
     Active Substance: POTASSIUM
     Indication: Hypokalaemia
     Dosage: 60 (NO UNIT DOSE PROVIDED)
     Route: 048
     Dates: start: 20230611, end: 20230611
  84. POTASSIUM [Concomitant]
     Active Substance: POTASSIUM
     Dosage: 20 (NO UNIT DOSE PROVIDED)
     Route: 048
     Dates: start: 20230615, end: 20230616
  85. POTASSIUM CHLORIDE [Concomitant]
     Active Substance: POTASSIUM CHLORIDE
     Indication: Hypokalaemia
     Dosage: 1500 (NO UNIT DOSE PROVIDED)
     Route: 048
     Dates: start: 20230614, end: 20230615
  86. POTASSIUM CHLORIDE [Concomitant]
     Active Substance: POTASSIUM CHLORIDE
     Indication: Leukopenia
     Dosage: 20 (NO UNIT DOSE PROVIDED)
     Route: 042
     Dates: start: 20230807, end: 20230810
  87. OXYBUTYNIN [Concomitant]
     Active Substance: OXYBUTYNIN
     Indication: Urinary incontinence
     Dosage: 5 (NO UNIT DOSE PROVIDED)
     Route: 048
     Dates: start: 20230615, end: 20230621
  88. NYSTATIN [Concomitant]
     Active Substance: NYSTATIN
     Indication: Antifungal prophylaxis
     Dosage: 4 (NO UNIT DOSE PROVIDED)
     Route: 048
     Dates: start: 20230615, end: 20230622
  89. DEXCHLORPHENIRAMINE [Concomitant]
     Active Substance: DEXCHLORPHENIRAMINE
     Indication: COVID-19
     Dosage: 2 NO UNIT DOSE PROVIDED
     Route: 048
     Dates: start: 20230603, end: 20230605
  90. PREDNISOLONE [Concomitant]
     Active Substance: PREDNISOLONE
     Indication: COVID-19 pneumonia
     Dosage: 10
     Route: 048
     Dates: start: 20230811, end: 20230814

REACTIONS (1)
  - COVID-19 pneumonia [Recovered/Resolved]

NARRATIVE: CASE EVENT DATE: 20230608
